FAERS Safety Report 5502079-2 (Version None)
Quarter: 2007Q4

REPORT INFORMATION
  Report Type: 
  Country: None (occurrence: None)
  Receive Date: 20071030
  Receipt Date: 20071022
  Transmission Date: 20080405
  Serious: Yes (Other)
  Sender: FDA-Public Use
  Company Number: MX-ELI_LILLY_AND_COMPANY-MX200710001660

PATIENT
  Age: 40 Year
  Sex: Female
  Weight: 65 kg

DRUGS (3)
  1. CYMBALTA [Suspect]
     Indication: MAJOR DEPRESSION
     Dosage: 60 MG, OTHER
     Route: 048
     Dates: start: 20070101
  2. CYMBALTA [Suspect]
     Dosage: 20 MG, OTHER
     Route: 048
  3. RIVOTRIL [Concomitant]
     Indication: ANXIOLYTIC THERAPY
     Dosage: UNK UNK, EACH EVENING
     Route: 048

REACTIONS (5)
  - ARRHYTHMIA [None]
  - HEADACHE [None]
  - HEART RATE IRREGULAR [None]
  - NERVOUSNESS [None]
  - SUFFOCATION FEELING [None]
